FAERS Safety Report 16794731 (Version 1)
Quarter: 2019Q3

REPORT INFORMATION
  Report Type: Spontaneous
  Country: US (occurrence: US)
  Receive Date: 20190911
  Receipt Date: 20190911
  Transmission Date: 20191005
  Serious: Yes (Other)
  Sender: FDA-Public Use
  Company Number: PHHY2019US208555

PATIENT
  Age: 58 Year
  Sex: Male

DRUGS (6)
  1. PARITAPREVIR [Concomitant]
     Active Substance: PARITAPREVIR
     Indication: HEPATITIS C
     Dosage: UNK
     Route: 065
  2. RITONAVIR. [Interacting]
     Active Substance: RITONAVIR
     Indication: HEPATITIS C
     Dosage: UNK
     Route: 065
  3. QUETIAPINE. [Suspect]
     Active Substance: QUETIAPINE
     Indication: PRODUCT USED FOR UNKNOWN INDICATION
     Dosage: UNK
     Route: 065
  4. OMBITASVIR [Concomitant]
     Active Substance: OMBITASVIR
     Indication: HEPATITIS C
     Dosage: UNK
     Route: 065
  5. DASABUVIR [Concomitant]
     Active Substance: DASABUVIR
     Indication: HEPATITIS C
     Dosage: UNK
     Route: 065
  6. LAMOTRIGINE. [Concomitant]
     Active Substance: LAMOTRIGINE
     Indication: EPILEPSY
     Dosage: UNK
     Route: 065

REACTIONS (14)
  - Overdose [Unknown]
  - Hypokalaemia [Unknown]
  - Sinus tachycardia [Unknown]
  - Tremor [Unknown]
  - Hypotension [Unknown]
  - Seizure [Unknown]
  - Delirium [Unknown]
  - Respiratory acidosis [Unknown]
  - Distributive shock [Unknown]
  - Acute kidney injury [Unknown]
  - Drug interaction [Unknown]
  - Metabolic acidosis [Unknown]
  - Electrocardiogram QT prolonged [Unknown]
  - Confusional state [Unknown]
